FAERS Safety Report 24912652 (Version 1)
Quarter: 2025Q1

REPORT INFORMATION
  Report Type: Other
  Country: SI (occurrence: SI)
  Receive Date: 20250131
  Receipt Date: 20250131
  Transmission Date: 20250409
  Serious: Yes (Life-Threatening)
  Sender: B BRAUN
  Company Number: SI-B.Braun Medical Inc.-2170252

PATIENT
  Age: 57 Year
  Sex: Male

DRUGS (7)
  1. MEROPENEM [Suspect]
     Active Substance: MEROPENEM
     Indication: Pneumonia
  2. MEROPENEM [Suspect]
     Active Substance: MEROPENEM
     Indication: Sepsis
  3. MEROPENEM [Suspect]
     Active Substance: MEROPENEM
     Indication: Pleural effusion
  4. CEFTRIAXONE [Concomitant]
     Active Substance: CEFTRIAXONE
  5. AMIODARONE HYDROCHLORIDE [Concomitant]
     Active Substance: AMIODARONE HYDROCHLORIDE
  6. MICAFUNGIN [Concomitant]
     Active Substance: MICAFUNGIN SODIUM
  7. FLUCLOXACILLIN [Concomitant]
     Active Substance: FLUCLOXACILLIN

REACTIONS (1)
  - Drug ineffective [Unknown]
